FAERS Safety Report 10073950 (Version 1)
Quarter: 2014Q2

REPORT INFORMATION
  Report Type: Spontaneous
  Country: AU (occurrence: AU)
  Receive Date: 20140413
  Receipt Date: 20140413
  Transmission Date: 20141212
  Serious: Yes (Other)
  Sender: FDA-Public Use
  Company Number: AU-MYLANLABS-2014S1007710

PATIENT
  Age: 60 Year
  Sex: Male

DRUGS (3)
  1. HALOPERIDOL [Suspect]
     Indication: AGGRESSION
     Dosage: INCREASED TO 60MG DAILY IN DIVIDED DOSES; FURTHER DOSE OF UP TO 20MG DAILY ALSO GIVEN
     Route: 065
  2. HALOPERIDOL [Suspect]
     Indication: AGGRESSION
     Dosage: UP TO 20MG DAILY (FURTHER DOSE AS NEEDED)
     Route: 065
  3. BENZATROPINE [Concomitant]
     Indication: EXTRAPYRAMIDAL DISORDER
     Route: 065

REACTIONS (3)
  - Extrapyramidal disorder [Not Recovered/Not Resolved]
  - Somnolence [Not Recovered/Not Resolved]
  - Mobility decreased [Not Recovered/Not Resolved]
